FAERS Safety Report 13715298 (Version 2)
Quarter: 2017Q4

REPORT INFORMATION
  Report Type: Spontaneous
  Country: US (occurrence: US)
  Receive Date: 20170704
  Receipt Date: 20171013
  Transmission Date: 20180320
  Serious: No
  Sender: FDA-Public Use
  Company Number: PHEH2017US019874

PATIENT
  Sex: Male

DRUGS (1)
  1. COSENTYX [Suspect]
     Active Substance: SECUKINUMAB
     Indication: PRODUCT USED FOR UNKNOWN INDICATION
     Dosage: 2 DF, QW
     Route: 065
     Dates: start: 20170627

REACTIONS (5)
  - Rosacea [Unknown]
  - Accidental exposure to product [Unknown]
  - Device malfunction [Unknown]
  - Injection site bruising [Unknown]
  - Incorrect dose administered by device [Unknown]
